FAERS Safety Report 9004131 (Version 3)
Quarter: 2013Q2

REPORT INFORMATION
  Report Type: Spontaneous
  Country: US (occurrence: US)
  Receive Date: 20130109
  Receipt Date: 20130402
  Transmission Date: 20140414
  Serious: No
  Sender: FDA-Public Use
  Company Number: US-BIOGENIDEC-2013BI000482

PATIENT
  Age: 17 Year
  Sex: Male

DRUGS (4)
  1. TYSABRI [Suspect]
     Indication: MULTIPLE SCLEROSIS
     Route: 042
     Dates: start: 20120924
  2. BENADRYL [Concomitant]
     Indication: PREMEDICATION
     Dates: start: 201212
  3. SOLU MEDROL [Concomitant]
     Indication: PREMEDICATION
     Dates: start: 201211
  4. STEROIDS [Concomitant]
     Indication: PREMEDICATION
     Dates: start: 201212

REACTIONS (4)
  - Hypersensitivity [Recovered/Resolved]
  - Chest discomfort [Unknown]
  - Off label use [Recovered/Resolved]
  - Infusion related reaction [Recovered/Resolved]
